FAERS Safety Report 6727434-4 (Version None)
Quarter: 2010Q2

REPORT INFORMATION
  Report Type: 
  Country: None (occurrence: None)
  Receive Date: 20100517
  Receipt Date: 20090928
  Transmission Date: 20101027
  Serious: No
  Sender: FDA-Public Use
  Company Number: TR-SANOFI-AVENTIS-200920480GDDC

PATIENT
  Sex: Female

DRUGS (1)
  1. LEFLUNOMIDE [Suspect]
     Dosage: DOSE AS USED: UNK

REACTIONS (1)
  - DRUG EXPOSURE DURING PREGNANCY [None]
